FAERS Safety Report 8536724-4 (Version None)
Quarter: 2012Q3

REPORT INFORMATION
  Report Type: 
  Country: None (occurrence: None)
  Receive Date: 20120718
  Receipt Date: 20120718
  Transmission Date: 20120928
  Serious: Yes (Hospitalization)
  Sender: FDA-Public Use
  Company Number: None

PATIENT
  Sex: Female
  Weight: 59.1 kg

DRUGS (5)
  1. CYCLOPHOSPHAMIDE [Suspect]
     Dosage: 1250 MG
  2. RITUXIMAB (MOAB C2B8 ANTI CD20, CHIMERIC) [Suspect]
     Dosage: 620 MG
  3. DOXORUBICIN HYDROCHLORIDE [Suspect]
     Dosage: 84 MG
  4. PREDNISONE [Suspect]
     Dosage: 200 MG
  5. VINCRISTINE SULFATE [Suspect]
     Dosage: 2 MG

REACTIONS (7)
  - PANCYTOPENIA [None]
  - ASTHENIA [None]
  - ASCITES [None]
  - NEUTROPENIA [None]
  - PYREXIA [None]
  - DEHYDRATION [None]
  - ABDOMINAL PAIN [None]
